FAERS Safety Report 16276054 (Version 2)
Quarter: 2019Q2

REPORT INFORMATION
  Report Type: Report from Study
  Country: US (occurrence: US)
  Receive Date: 20190505
  Receipt Date: 20190612
  Transmission Date: 20190711
  Serious: No
  Sender: FDA-Public Use
  Company Number: PHEH2019US018613

PATIENT
  Sex: Female

DRUGS (1)
  1. COSENTYX [Suspect]
     Active Substance: SECUKINUMAB
     Indication: PRODUCT USED FOR UNKNOWN INDICATION
     Dosage: 300 MG, QMO (VIAL)
     Route: 030

REACTIONS (4)
  - Drug ineffective [Not Recovered/Not Resolved]
  - Incorrect route of product administration [Unknown]
  - Arthropathy [Unknown]
  - Nausea [Unknown]
